FAERS Safety Report 12822392 (Version 1)
Quarter: 2016Q4

REPORT INFORMATION
  Report Type: Spontaneous
  Country: US (occurrence: US)
  Receive Date: 20161007
  Receipt Date: 20161007
  Transmission Date: 20170207
  Serious: No
  Sender: FDA-Public Use
  Company Number: US-TEVA-699844ACC

PATIENT
  Age: 19 Year
  Sex: Female
  Weight: 68.1 kg

DRUGS (1)
  1. PLAN B ONE-STEP [Suspect]
     Active Substance: LEVONORGESTREL
     Indication: POST COITAL CONTRACEPTION
     Dates: start: 20160831, end: 20160831

REACTIONS (5)
  - Food craving [Not Recovered/Not Resolved]
  - Headache [Recovered/Resolved]
  - Breast pain [Not Recovered/Not Resolved]
  - Dysmenorrhoea [Recovered/Resolved]
  - Vaginal discharge [Recovered/Resolved]

NARRATIVE: CASE EVENT DATE: 20160831
